FAERS Safety Report 6418567-0 (Version None)
Quarter: 2009Q4

REPORT INFORMATION
  Report Type: 
  Country: None (occurrence: None)
  Receive Date: 20091028
  Receipt Date: 20090923
  Transmission Date: 20100525
  Serious: Yes (Disabling, Other)
  Sender: FDA-Public Use
  Company Number: MX-AMGEN-QUU370093

PATIENT
  Sex: Female
  Weight: 40 kg

DRUGS (4)
  1. NEUPOGEN [Suspect]
     Indication: CHEMOTHERAPY
     Route: 042
     Dates: start: 20030101
  2. EUTIROX [Concomitant]
     Route: 048
     Dates: start: 19890101
  3. BUSCAPINA [Concomitant]
     Route: 048
     Dates: start: 20030101
  4. UNSPECIFIED ANTINEOPLASTIC AGENT [Concomitant]

REACTIONS (2)
  - FALL [None]
  - FEMORAL NECK FRACTURE [None]
